FAERS Safety Report 7685739-7 (Version None)
Quarter: 2011Q3

REPORT INFORMATION
  Report Type: 
  Country: None (occurrence: None)
  Receive Date: 20110815
  Receipt Date: 20110815
  Transmission Date: 20111222
  Serious: Yes (Hospitalization)
  Sender: FDA-Public Use
  Company Number: None

PATIENT
  Age: 77 Year
  Sex: Female
  Weight: 79.6 kg

DRUGS (6)
  1. CARTIA XT [Concomitant]
     Route: 048
  2. FISH OIL [Concomitant]
     Route: 048
  3. PRADAXA [Suspect]
     Indication: ATRIAL FIBRILLATION
     Dosage: 150 MG
     Route: 048
  4. MULTI-VITAMIN [Concomitant]
     Route: 048
  5. CALCIUM W D [Concomitant]
     Route: 048
  6. HEPARIN [Concomitant]
     Dosage: UNKNOWN, PREOP DOSE
     Route: 058
     Dates: start: 20110616, end: 20110618

REACTIONS (3)
  - HEPARIN-INDUCED THROMBOCYTOPENIA [None]
  - GASTROINTESTINAL HAEMORRHAGE [None]
  - HAEMATOCRIT DECREASED [None]
